FAERS Safety Report 7414302-8 (Version None)
Quarter: 2011Q2

REPORT INFORMATION
  Report Type: 
  Country: None (occurrence: None)
  Receive Date: 20110411
  Receipt Date: 20110411
  Transmission Date: 20111010
  Serious: Yes (Life-Threatening)
  Sender: FDA-Public Use
  Company Number: None

PATIENT
  Age: 5 Year
  Sex: Female
  Weight: 20.4119 kg

DRUGS (2)
  1. RITALIN [Suspect]
  2. CONCERTA [Concomitant]

REACTIONS (1)
  - CHEST PAIN [None]
